FAERS Safety Report 12998601 (Version 1)
Quarter: 2016Q4

REPORT INFORMATION
  Report Type: Spontaneous
  Country: US (occurrence: US)
  Receive Date: 20161204
  Receipt Date: 20161204
  Transmission Date: 20170207
  Serious: Yes (Other)
  Sender: FDA-Public Use
  Company Number: None

PATIENT
  Age: 64 Year
  Sex: Female

DRUGS (1)
  1. FENTANYL IV [Suspect]
     Active Substance: FENTANYL
     Indication: PAIN
     Dosage: ?          OTHER FREQUENCY:AMBULANCE;?INTRAVENOUS (NOT OTHERWISE SPECIFIED)
     Route: 042

REACTIONS (7)
  - Tremor [None]
  - Loss of consciousness [None]
  - Emotional disorder [None]
  - Vision blurred [None]
  - Feeling abnormal [None]
  - Parkinson^s disease [None]
  - Dizziness [None]

NARRATIVE: CASE EVENT DATE: 20161031
